FAERS Safety Report 9999418 (Version 2)
Quarter: 2014Q1

REPORT INFORMATION
  Report Type: Spontaneous
  Country: CA (occurrence: CA)
  Receive Date: 20140312
  Receipt Date: 20140312
  Transmission Date: 20141002
  Serious: Yes (Death)
  Sender: FDA-Public Use
  Company Number: CA-BAXTER-2014BAX009604

PATIENT
  Age: 70 Year
  Sex: Male

DRUGS (2)
  1. DIANEAL PD 101 SOLUTION WITH 0.5% DEXTROSE [Suspect]
     Indication: RENAL FAILURE
     Route: 033
     Dates: start: 200710, end: 20140223
  2. DIANEAL PD4 SOLUTION WITH 1.5% DEXTROSE AND 2.5 MEQ/L CALCIUM [Suspect]
     Indication: RENAL FAILURE
     Route: 033
     Dates: start: 200710, end: 20140223

REACTIONS (1)
  - Cardiac arrest [Fatal]
